FAERS Safety Report 17363246 (Version 3)
Quarter: 2020Q1

REPORT INFORMATION
  Report Type: Report from Study
  Country: US (occurrence: US)
  Receive Date: 20200203
  Receipt Date: 20200323
  Transmission Date: 20200409
  Serious: Yes (Death, Hospitalization)
  Sender: FDA-Public Use
  Company Number: US-ACTELION-A-US2020-201117

PATIENT
  Sex: Female
  Weight: 88.44 kg

DRUGS (2)
  1. TADALAFIL. [Concomitant]
     Active Substance: TADALAFIL
     Dosage: UNK
  2. OPSUMIT [Suspect]
     Active Substance: MACITENTAN
     Indication: PULMONARY ARTERIAL HYPERTENSION
     Dosage: 10 MG, QD
     Route: 048

REACTIONS (7)
  - Influenza [Unknown]
  - Hepatic mass [Unknown]
  - Mental status changes [Unknown]
  - Hepatic cancer [Fatal]
  - Product dose omission [Unknown]
  - Hepatic vein thrombosis [Unknown]
  - Dizziness [Not Recovered/Not Resolved]
